FAERS Safety Report 24344140 (Version 6)
Quarter: 2025Q1

REPORT INFORMATION
  Report Type: Report from Study
  Country: US (occurrence: US)
  Receive Date: 20240920
  Receipt Date: 20250224
  Transmission Date: 20250409
  Serious: Yes (Other)
  Sender: NOVARTIS
  Company Number: US-002147023-NVSC2024US186803

PATIENT
  Sex: Female

DRUGS (1)
  1. KESIMPTA [Suspect]
     Active Substance: OFATUMUMAB
     Indication: Relapsing multiple sclerosis
     Route: 065

REACTIONS (16)
  - Blindness [Unknown]
  - Burns third degree [Unknown]
  - Central nervous system lesion [Unknown]
  - Hypoaesthesia [Unknown]
  - Migraine [Unknown]
  - Hypoaesthesia oral [Unknown]
  - Ageusia [Unknown]
  - Tremor [Unknown]
  - Scoliosis [Unknown]
  - Osteoarthritis [Unknown]
  - Back pain [Unknown]
  - Thermal burn [Unknown]
  - Accident [Unknown]
  - Nasopharyngitis [Unknown]
  - Burns second degree [Unknown]
  - Feeling abnormal [Unknown]
